FAERS Safety Report 9913521 (Version 1)
Quarter: 2014Q1

REPORT INFORMATION
  Report Type: Spontaneous
  Country: US (occurrence: None)
  Receive Date: 20140214
  Receipt Date: 20140214
  Transmission Date: 20141002
  Serious: Yes (Other)
  Sender: FDA-Public Use
  Company Number: 2014AP001024

PATIENT
  Age: 42 Year
  Sex: Female

DRUGS (3)
  1. LAMOTRIGINE TABLETS [Suspect]
     Indication: EPILEPSY
  2. LEVETIRACETAM TABLETS [Suspect]
     Indication: EPILEPSY
  3. GABAPENTIN [Concomitant]

REACTIONS (5)
  - Drug reaction with eosinophilia and systemic symptoms [None]
  - Pyrexia [None]
  - Lymphadenopathy [None]
  - Rash pruritic [None]
  - Hepatitis [None]
